FAERS Safety Report 26106778 (Version 2)
Quarter: 2025Q4

REPORT INFORMATION
  Report Type: Spontaneous
  Country: EU (occurrence: None)
  Receive Date: 20251201
  Receipt Date: 20251212
  Transmission Date: 20260118
  Serious: Yes (Other)
  Sender: UMEDICA LABS
  Company Number: EU-Umedica-000723

PATIENT
  Age: 57 Year
  Sex: Male

DRUGS (8)
  1. CARBAMAZEPINE [Suspect]
     Active Substance: CARBAMAZEPINE
     Indication: Product used for unknown indication
  2. PREGABALIN [Concomitant]
     Active Substance: PREGABALIN
  3. ETORICOXIB [Concomitant]
     Active Substance: ETORICOXIB
     Dosage: DRUG DISCONTINUED
  4. OLMESARTAN [Concomitant]
     Active Substance: OLMESARTAN
     Indication: Hypertension
  5. HYDROCHLOROTHIAZIDE [Concomitant]
     Active Substance: HYDROCHLOROTHIAZIDE
     Indication: Hypertension
  6. METFORMIN [Concomitant]
     Active Substance: METFORMIN HYDROCHLORIDE
  7. DAPAGLIFLOZIN [Concomitant]
     Active Substance: DAPAGLIFLOZIN
  8. INSULIN NOS [Concomitant]
     Active Substance: INSULIN NOS
     Indication: Type 1 diabetes mellitus
     Dosage: BASAL AND RAPID-ACTING

REACTIONS (1)
  - Toxic skin eruption [Recovered/Resolved]
